FAERS Safety Report 4598851-6 (Version None)
Quarter: 2005Q1

REPORT INFORMATION
  Report Type: 
  Country: None (occurrence: None)
  Receive Date: 20050302
  Receipt Date: 20050302
  Transmission Date: 20050727
  Serious: Yes (Life-Threatening, Hospitalization, Disabling)
  Sender: FDA-Public Use
  Company Number: None

PATIENT
  Sex: Female
  Weight: 63.5036 kg

DRUGS (2)
  1. LEXAPRO [Suspect]
     Indication: DEMENTIA ALZHEIMER'S TYPE
     Dosage: 10 MG QD ORAL
     Route: 048
     Dates: start: 20050109, end: 20050131
  2. LEXAPRO [Suspect]
     Indication: DEPRESSION
     Dosage: 10 MG QD ORAL
     Route: 048
     Dates: start: 20050109, end: 20050131

REACTIONS (1)
  - HAEMORRHAGE INTRACRANIAL [None]
